FAERS Safety Report 6108527-1 (Version None)
Quarter: 2009Q1

REPORT INFORMATION
  Report Type: 
  Country: None (occurrence: None)
  Receive Date: 20090309
  Receipt Date: 20090225
  Transmission Date: 20090719
  Serious: Yes (Other)
  Sender: FDA-Public Use
  Company Number: DE-JNJCH-2009004141

PATIENT
  Sex: Male

DRUGS (2)
  1. RHINOPRONT KOMBI [Suspect]
     Indication: POISONING
     Dosage: TEXT:5 TABLETS 4 TO 5 TIMES PER WEEK
     Route: 048
  2. ASPIRIN [Suspect]
     Indication: POISONING
     Dosage: TEXT:2 TO 3 UNIT 7 TO 8 TIMES PER MONTH
     Route: 065

REACTIONS (4)
  - ATTENTION DEFICIT/HYPERACTIVITY DISORDER [None]
  - DRUG ABUSE [None]
  - INCORRECT DRUG ADMINISTRATION DURATION [None]
  - RESTLESSNESS [None]
